FAERS Safety Report 7236216-9 (Version None)
Quarter: 2011Q1

REPORT INFORMATION
  Report Type: 
  Country: None (occurrence: None)
  Receive Date: 20110120
  Receipt Date: 20110110
  Transmission Date: 20110831
  Serious: Yes (Other)
  Sender: FDA-Public Use
  Company Number: JP-EISAI INC-E3810-04390-SPO-JP

PATIENT
  Age: 69 Year

DRUGS (3)
  1. PARIET (RABEPRAZOLE) [Suspect]
     Indication: PROPHYLAXIS
     Route: 048
  2. ASPIRIN [Concomitant]
     Indication: PROPHYLAXIS
  3. CLOPIDOGREL [Concomitant]
     Indication: PROPHYLAXIS

REACTIONS (1)
  - GASTROINTESTINAL HAEMORRHAGE [None]
